FAERS Safety Report 6406726-2 (Version None)
Quarter: 2009Q4

REPORT INFORMATION
  Report Type: 
  Country: None (occurrence: None)
  Receive Date: 20091005
  Receipt Date: 20091001
  Transmission Date: 20100525
  Serious: No
  Sender: FDA-Public Use
  Company Number: IN-144855

PATIENT
  Sex: Female

DRUGS (1)
  1. WINRHO SDF [Suspect]
     Indication: THROMBOCYTOPENIC PURPURA
     Dosage: (50 UG/KG TOTAL INTRAVENOUS (NOT OTHERWISE SPECIFIED)

REACTIONS (1)
  - HAEMOGLOBIN DECREASED [None]
